FAERS Safety Report 9636137 (Version 2)
Quarter: 2013Q4

REPORT INFORMATION
  Report Type: Spontaneous
  Country: US (occurrence: US)
  Receive Date: 20131021
  Receipt Date: 20131021
  Transmission Date: 20140711
  Serious: Yes (Hospitalization, Other)
  Sender: FDA-Public Use
  Company Number: US-AMGEN-USASP2012079172

PATIENT
  Age: 74 Year
  Sex: Male

DRUGS (1)
  1. ENBREL [Suspect]
     Indication: RHEUMATOID ARTHRITIS
     Dosage: 50 MG, QWK
     Route: 065
     Dates: start: 2007, end: 201212

REACTIONS (9)
  - Diplopia [Recovered/Resolved]
  - Tremor [Recovered/Resolved]
  - Decreased appetite [Recovered/Resolved]
  - Balance disorder [Recovered/Resolved]
  - Blindness [Unknown]
  - Rheumatoid arthritis [Recovered/Resolved]
  - Pain in extremity [Recovering/Resolving]
  - Oedema peripheral [Recovering/Resolving]
  - Musculoskeletal stiffness [Not Recovered/Not Resolved]
